FAERS Safety Report 5521494-4 (Version None)
Quarter: 2007Q4

REPORT INFORMATION
  Report Type: 
  Country: None (occurrence: None)
  Receive Date: 20071119
  Receipt Date: 20071108
  Transmission Date: 20080405
  Serious: Yes (Death, Other)
  Sender: FDA-Public Use
  Company Number: ES-PFIZER INC-2007095794

PATIENT
  Age: 69 Year
  Sex: Male

DRUGS (3)
  1. CELECOXIB [Suspect]
  2. ESTRACYT [Suspect]
  3. DOCETAXEL [Suspect]

REACTIONS (4)
  - GASTRIC PERFORATION [None]
  - GASTRIC ULCER [None]
  - NEUTROPENIA [None]
  - STOMATITIS [None]
